FAERS Safety Report 15986664 (Version 1)
Quarter: 2019Q1

REPORT INFORMATION
  Report Type: Spontaneous
  Country: US (occurrence: US)
  Receive Date: 20190220
  Receipt Date: 20190220
  Transmission Date: 20190418
  Serious: No
  Sender: FDA-Public Use
  Company Number: US-SUNOVION-2019SUN000527

PATIENT
  Age: 64 Year
  Sex: Female
  Weight: 108.84 kg

DRUGS (6)
  1. LATUDA [Suspect]
     Active Substance: LURASIDONE HYDROCHLORIDE
     Indication: SCHIZOAFFECTIVE DISORDER
     Dosage: 40 MG EVENINGS
     Route: 048
  2. LATUDA [Suspect]
     Active Substance: LURASIDONE HYDROCHLORIDE
     Indication: SCHIZOPHRENIA
     Dosage: 120 MG, HS 1 TAB Q EVENING
     Route: 048
  3. SYNTHROID [Concomitant]
     Active Substance: LEVOTHYROXINE SODIUM
     Indication: HYPOTHYROIDISM
     Dosage: 150 MG, QD
     Route: 048
  4. PROVIGIL [Concomitant]
     Active Substance: MODAFINIL
     Indication: SLEEP APNOEA SYNDROME
     Dosage: 200 MG, TID
     Route: 048
  5. LATUDA [Suspect]
     Active Substance: LURASIDONE HYDROCHLORIDE
     Indication: BIPOLAR DISORDER
     Dosage: 160 MG, HS 2 TABS  Q EVENING
     Route: 048
  6. LATUDA [Suspect]
     Active Substance: LURASIDONE HYDROCHLORIDE
     Dosage: 120 MG, HS 2 TABS  Q EVENING
     Route: 048

REACTIONS (17)
  - Feeling abnormal [Not Recovered/Not Resolved]
  - Vomiting [Unknown]
  - Mental disorder [Not Recovered/Not Resolved]
  - Conversion disorder [Not Recovered/Not Resolved]
  - Muscle spasms [Unknown]
  - Anxiety [Unknown]
  - Off label use [Unknown]
  - Crying [Not Recovered/Not Resolved]
  - Dyskinesia [Unknown]
  - Overdose [Unknown]
  - Paranoia [Not Recovered/Not Resolved]
  - Anger [Unknown]
  - Mania [Not Recovered/Not Resolved]
  - Panic attack [Unknown]
  - Gastrooesophageal reflux disease [Unknown]
  - Dyspnoea [Unknown]
  - Nausea [Unknown]
